FAERS Safety Report 5824219-8 (Version None)
Quarter: 2008Q3

REPORT INFORMATION
  Report Type: 
  Country: None (occurrence: None)
  Receive Date: 20080728
  Receipt Date: 20080610
  Transmission Date: 20090109
  Serious: Yes (Other)
  Sender: FDA-Public Use
  Company Number: PHHY2008GB10841

PATIENT
  Age: 72 Year
  Sex: Female

DRUGS (2)
  1. GLEEVEC [Suspect]
     Indication: CHRONIC MYELOID LEUKAEMIA
     Dosage: 300 MG DAILY
     Dates: start: 20071126, end: 20080317
  2. GLEEVEC [Suspect]
     Dosage: 400 MG DAILY

REACTIONS (2)
  - ANAEMIA [None]
  - DEMENTIA [None]
